FAERS Safety Report 7284341-9 (Version None)
Quarter: 2011Q1

REPORT INFORMATION
  Report Type: 
  Country: None (occurrence: None)
  Receive Date: 20110209
  Receipt Date: 20110207
  Transmission Date: 20110831
  Serious: Yes (Hospitalization, Other)
  Sender: FDA-Public Use
  Company Number: US-ABBOTT-11P-163-0703160-00

PATIENT
  Sex: Female
  Weight: 55.388 kg

DRUGS (13)
  1. HUMIRA [Suspect]
     Indication: RHEUMATOID ARTHRITIS
     Dates: start: 20090201, end: 20110129
  2. METOPROLOL [Concomitant]
     Indication: HYPERTENSION
  3. OMEPRAZOLE DR [Concomitant]
     Indication: GASTROOESOPHAGEAL REFLUX DISEASE
  4. ATIVAN [Concomitant]
     Indication: PALPITATIONS
     Dosage: AT BEDTIME AS NEEDED
  5. CALCIUM WITH VITAMIN D [Concomitant]
     Indication: PRODUCT USED FOR UNKNOWN INDICATION
     Dosage: 600MG OF CALCIUM
  6. CRANBERRY [Concomitant]
     Indication: PRODUCT USED FOR UNKNOWN INDICATION
  7. ATIVAN [Concomitant]
     Indication: INSOMNIA
  8. HUMIRA [Suspect]
     Indication: PSORIASIS
  9. HYDROCHLOROTHIAZIDE [Concomitant]
     Indication: HYPERTENSION
  10. VITAMIN B COMPLEX CAP [Concomitant]
     Indication: PRODUCT USED FOR UNKNOWN INDICATION
  11. VITAMIN D [Concomitant]
     Indication: PRODUCT USED FOR UNKNOWN INDICATION
  12. LEVOTHYROXINE SODIUM [Concomitant]
     Indication: BLOOD THYROID STIMULATING HORMONE DECREASED
  13. MULTIVITAMIN [Concomitant]
     Indication: PRODUCT USED FOR UNKNOWN INDICATION

REACTIONS (3)
  - NODULE [None]
  - LOCALISED INFECTION [None]
  - ABASIA [None]
